FAERS Safety Report 4665568-9 (Version None)
Quarter: 2005Q2

REPORT INFORMATION
  Report Type: 
  Country: None (occurrence: None)
  Receive Date: 20050519
  Receipt Date: 20041227
  Transmission Date: 20051028
  Serious: No
  Sender: FDA-Public Use
  Company Number: US-BRISTOL-MYERS SQUIBB COMPANY-12806840

PATIENT
  Age: 57 Year
  Sex: Female
  Weight: 116 kg

DRUGS (3)
  1. MONOPRIL [Suspect]
     Indication: HYPERTENSION
     Route: 048
     Dates: start: 20041210, end: 20041223
  2. METFORMIN HCL [Suspect]
  3. ATENOLOL [Concomitant]

REACTIONS (4)
  - ASTHENIA [None]
  - MYALGIA [None]
  - NAUSEA [None]
  - VISION BLURRED [None]
